FAERS Safety Report 5419460-2 (Version None)
Quarter: 2007Q3

REPORT INFORMATION
  Report Type: 
  Country: None (occurrence: None)
  Receive Date: 20070820
  Receipt Date: 20070807
  Transmission Date: 20080115
  Serious: Yes (Other)
  Sender: FDA-Public Use
  Company Number: B0483662A

PATIENT
  Age: 55 Year
  Sex: Female
  Weight: 56 kg

DRUGS (2)
  1. SERETIDE DISKUS [Suspect]
     Indication: ASTHMA
     Dosage: 2PUFF PER DAY
     Route: 055
     Dates: start: 20021201
  2. SINGULAIR [Concomitant]
     Indication: ASTHMA

REACTIONS (4)
  - ASTHMA [None]
  - MUSCLE DISORDER [None]
  - PARAESTHESIA [None]
  - TENDONITIS [None]
